FAERS Safety Report 4912683-8 (Version None)
Quarter: 2006Q1

REPORT INFORMATION
  Report Type: 
  Country: None (occurrence: None)
  Receive Date: 20060215
  Receipt Date: 20051027
  Transmission Date: 20060701
  Serious: Yes (Hospitalization, Other)
  Sender: FDA-Public Use
  Company Number: US-MERCK-0510USA09918

PATIENT
  Age: 42 Year
  Sex: Female
  Weight: 155 kg

DRUGS (1)
  1. VIOXX [Suspect]
     Indication: ARTHRITIS
     Route: 048
     Dates: start: 20030228, end: 20040808

REACTIONS (4)
  - ANXIETY [None]
  - ARTERIAL OCCLUSIVE DISEASE [None]
  - DEPRESSION [None]
  - ISCHAEMIC STROKE [None]
